FAERS Safety Report 5636052-0 (Version None)
Quarter: 2008Q1

REPORT INFORMATION
  Report Type: 
  Country: None (occurrence: None)
  Receive Date: 20080225
  Receipt Date: 20080213
  Transmission Date: 20080703
  Serious: Yes (Hospitalization)
  Sender: FDA-Public Use
  Company Number: FR-WYE-G01051908

PATIENT
  Sex: Female

DRUGS (4)
  1. EFFEXOR [Suspect]
     Indication: PSYCHOTIC DISORDER
     Dosage: UNKNOWN
     Route: 048
  2. RISPERDAL [Suspect]
     Indication: PSYCHOTIC DISORDER
     Dosage: UNKNOWN
     Route: 048
  3. IMPLANON [Concomitant]
     Indication: CONTRACEPTION
     Dosage: UNKNOWN
  4. RIVOTRIL [Suspect]
     Indication: PSYCHOTIC DISORDER
     Dosage: UNKNOWN
     Route: 048

REACTIONS (3)
  - ALTERED STATE OF CONSCIOUSNESS [None]
  - INTENTIONAL DRUG MISUSE [None]
  - MALAISE [None]
